FAERS Safety Report 9017794 (Version 1)
Quarter: 2013Q1

REPORT INFORMATION
  Report Type: Spontaneous
  Country: JP (occurrence: JP)
  Receive Date: 20130118
  Receipt Date: 20130118
  Transmission Date: 20140127
  Serious: Yes (Other)
  Sender: FDA-Public Use
  Company Number: JP-ACCORD-015987

PATIENT
  Age: 18 Year
  Sex: Male
  Weight: 27.6 kg

DRUGS (3)
  1. METHYLPREDNISOLONE [Suspect]
     Indication: INTESTINAL TRANSPLANT
     Dosage: MP 10 MG/KG AFTER REFLOW, 1.25?4, 1 ? 4, 0.75?4, AND 0.5?4 MG/KG, EACH 6 H AND EACH 12 H THEREAFTER
  2. DACLIZUMAB [Concomitant]
     Indication: INTESTINAL TRANSPLANT
  3. TACROLIMUS [Suspect]
     Indication: INTESTINAL TRANSPLANT
     Route: 042

REACTIONS (7)
  - Transplant rejection [Recovered/Resolved]
  - Hepatic cirrhosis [Unknown]
  - Hepatic steatosis [Unknown]
  - Peritonitis bacterial [Unknown]
  - Cytomegalovirus infection [Unknown]
  - Aspergillus infection [Unknown]
  - Off label use [Unknown]
